FAERS Safety Report 7043941-1 (Version None)
Quarter: 2010Q4

REPORT INFORMATION
  Report Type: 
  Country: None (occurrence: None)
  Receive Date: 20101008
  Receipt Date: 20101008
  Transmission Date: 20110411
  Serious: Yes (Life-Threatening)
  Sender: FDA-Public Use
  Company Number: None

PATIENT
  Age: 69 Year
  Sex: Female
  Weight: 63.5036 kg

DRUGS (2)
  1. LYRICA [Suspect]
     Indication: HYPOAESTHESIA
     Dosage: 50MG ONE DAILY PO
     Route: 048
     Dates: start: 20100928, end: 20101001
  2. LYRICA [Suspect]
     Indication: PARAESTHESIA
     Dosage: 50MG ONE DAILY PO
     Route: 048
     Dates: start: 20100928, end: 20101001

REACTIONS (13)
  - COLD SWEAT [None]
  - CONDITION AGGRAVATED [None]
  - DEPRESSION [None]
  - DIZZINESS [None]
  - DRUG RESISTANCE [None]
  - FEAR [None]
  - HALLUCINATION, AUDITORY [None]
  - INCORRECT DOSE ADMINISTERED [None]
  - INSOMNIA [None]
  - PARAESTHESIA [None]
  - PSYCHOTIC DISORDER [None]
  - SELF-INJURIOUS IDEATION [None]
  - WRONG TECHNIQUE IN DRUG USAGE PROCESS [None]
